FAERS Safety Report 5720231-8 (Version None)
Quarter: 2008Q2

REPORT INFORMATION
  Report Type: 
  Country: None (occurrence: None)
  Receive Date: 20080423
  Receipt Date: 20070831
  Transmission Date: 20081010
  Serious: Yes (Hospitalization, Other)
  Sender: FDA-Public Use
  Company Number: 245185

PATIENT
  Age: 75 Year
  Sex: Male
  Weight: 93.9 kg

DRUGS (3)
  1. AVASTIN [Suspect]
     Indication: NON-SMALL CELL LUNG CANCER
     Dosage: 1486 MG, Q32, INTRAVENOUS
     Route: 042
     Dates: start: 20070524, end: 20070709
  2. TAXOL [Concomitant]
  3. CARBOPLATIN [Concomitant]

REACTIONS (1)
  - RECTAL HAEMORRHAGE [None]
